FAERS Safety Report 5572751-7 (Version None)
Quarter: 2007Q4

REPORT INFORMATION
  Report Type: 
  Country: None (occurrence: None)
  Receive Date: 20071222
  Receipt Date: 20071212
  Transmission Date: 20080405
  Serious: Yes (Hospitalization)
  Sender: FDA-Public Use
  Company Number: US-PFIZER INC-2007096295

PATIENT
  Sex: Male
  Weight: 72.1 kg

DRUGS (21)
  1. SUTENT [Suspect]
     Indication: MALIGNANT NEOPLASM OF AMPULLA OF VATER
     Route: 048
     Dates: start: 20070829, end: 20071031
  2. ASPIRIN [Concomitant]
     Route: 048
     Dates: start: 20071001
  3. HYDROCHLOROTHIAZIDE [Concomitant]
     Route: 048
  4. LISINOPRIL [Concomitant]
     Route: 048
     Dates: start: 20041101
  5. VITAMIN B-12 [Concomitant]
     Route: 048
     Dates: start: 20070401
  6. HYDROCODONE BITARTRATE + ACETAMINOPHEN [Concomitant]
     Route: 048
     Dates: start: 20070401
  7. ASPIRIN [Concomitant]
     Route: 048
     Dates: start: 20050601
  8. FERROUS SULFATE TAB [Concomitant]
     Route: 048
     Dates: start: 20070401
  9. DOCUSATE SODIUM [Concomitant]
     Route: 048
     Dates: start: 20070301
  10. ATIVAN [Concomitant]
     Route: 048
     Dates: start: 20070701
  11. TPN [Concomitant]
     Route: 048
     Dates: start: 20070712
  12. FLUOROURACIL [Concomitant]
     Route: 042
     Dates: start: 20070829
  13. LEUCOVORIN [Concomitant]
     Route: 042
     Dates: start: 20070829
  14. DEXAMETHASONE TAB [Concomitant]
     Route: 042
     Dates: start: 20070829
  15. DOLASETRON [Concomitant]
     Route: 042
     Dates: start: 20070829
  16. OXALIPLATIN [Concomitant]
     Route: 042
     Dates: start: 20071010
  17. TYLENOL W/ CODEINE [Concomitant]
     Route: 048
     Dates: start: 20071009
  18. OMEPRAZOLE [Concomitant]
     Route: 048
     Dates: start: 20071010
  19. SENNA [Concomitant]
     Route: 048
     Dates: start: 20071003
  20. METOCLOPRAMIDE [Concomitant]
     Route: 048
     Dates: start: 20040401
  21. OXYCODONE HCL [Concomitant]
     Route: 048
     Dates: start: 20071001

REACTIONS (1)
  - ENTEROCUTANEOUS FISTULA [None]
